FAERS Safety Report 25743353 (Version 1)
Quarter: 2025Q3

REPORT INFORMATION
  Report Type: Report from Study
  Country: CN (occurrence: CN)
  Receive Date: 20250830
  Receipt Date: 20250830
  Transmission Date: 20251020
  Serious: Yes (Other)
  Sender: NOVARTIS
  Company Number: CN-002147023-NVSC2025CN136022

PATIENT
  Sex: Male

DRUGS (1)
  1. LEQVIO [Suspect]
     Active Substance: INCLISIRAN SODIUM
     Indication: Hyperlipidaemia
     Route: 058
     Dates: start: 20250630, end: 20250630

REACTIONS (6)
  - Blood triglycerides increased [Unknown]
  - Blood uric acid increased [Unknown]
  - Blood cholesterol increased [Unknown]
  - Drug ineffective [Unknown]
  - Globulins increased [Unknown]
  - Non-high-density lipoprotein cholesterol increased [Unknown]

NARRATIVE: CASE EVENT DATE: 20250101
